FAERS Safety Report 16698561 (Version 4)
Quarter: 2020Q2

REPORT INFORMATION
  Report Type: Spontaneous
  Country: US (occurrence: US)
  Receive Date: 20190813
  Receipt Date: 20200617
  Transmission Date: 20200713
  Serious: No
  Sender: FDA-Public Use
  Company Number: US-PFIZER INC-2019341737

PATIENT
  Age: 70 Year
  Sex: Female
  Weight: 88.44 kg

DRUGS (2)
  1. GENOTROPIN [Suspect]
     Active Substance: SOMATROPIN
     Indication: GROWTH HORMONE DEFICIENCY
     Dosage: 0.3 MG, DAILY; (0.3 MG ALTERNATING WITH 0.2MG NEXT DAY INJECTIONS DAILY)
  2. GENOTROPIN [Suspect]
     Active Substance: SOMATROPIN
     Dosage: 0.2 MG, DAILY; (0.3 MG ALTERNATING WITH 0.2MG NEXT DAY INJECTIONS DAILY)

REACTIONS (3)
  - Fatigue [Unknown]
  - Product dose omission [Not Recovered/Not Resolved]
  - Device issue [Not Recovered/Not Resolved]

NARRATIVE: CASE EVENT DATE: 201908
